FAERS Safety Report 17335725 (Version 1)
Quarter: 2020Q1

REPORT INFORMATION
  Report Type: Spontaneous
  Country: US (occurrence: US)
  Receive Date: 20200128
  Receipt Date: 20200128
  Transmission Date: 20200409
  Serious: No
  Sender: FDA-Public Use
  Company Number: US-MYLANLABS-2020M1006034

PATIENT
  Sex: Male

DRUGS (7)
  1. BUSPIRONE [Concomitant]
     Active Substance: BUSPIRONE HYDROCHLORIDE
  2. IBUPROFEN. [Concomitant]
     Active Substance: IBUPROFEN
  3. HYDROCODONE [Concomitant]
     Active Substance: HYDROCODONE
  4. LOSARTAN. [Concomitant]
     Active Substance: LOSARTAN
  5. CLONIDINE. [Concomitant]
     Active Substance: CLONIDINE
  6. PROZAC [Concomitant]
     Active Substance: FLUOXETINE HYDROCHLORIDE
  7. WIXELA INHUB [Suspect]
     Active Substance: FLUTICASONE PROPIONATE\SALMETEROL XINAFOATE
     Indication: ASTHMA
     Dosage: UNK

REACTIONS (2)
  - Product dose omission [Unknown]
  - Asthma [Not Recovered/Not Resolved]
